FAERS Safety Report 8653939 (Version 2)
Quarter: 2012Q4

REPORT INFORMATION
  Report Type: 
  Country: US (occurrence: US)
  Receive Date: 20120709
  Receipt Date: 20120928
  Transmission Date: 20130627
  Serious: Yes (Hospitalization, Other)
  Sender: FDA-Public Use
  Company Number: US-JNJFOC-20120700403

PATIENT
  Age: 76 Year
  Sex: Male

DRUGS (26)
  1. REMICADE [Suspect]
     Indication: COLITIS ULCERATIVE
     Route: 042
     Dates: start: 20120712
  2. REMICADE [Suspect]
     Indication: COLITIS ULCERATIVE
     Route: 042
     Dates: start: 201206
  3. REMICADE [Suspect]
     Indication: COLITIS ULCERATIVE
     Route: 042
     Dates: start: 20120509
  4. REMICADE [Suspect]
     Indication: COLITIS ULCERATIVE
     Route: 042
     Dates: start: 201204
  5. REMICADE [Suspect]
     Indication: COLITIS ULCERATIVE
     Route: 042
     Dates: start: 20101215
  6. PREDNISONE [Concomitant]
     Indication: PREMEDICATION
     Dosage: 3 times
     Route: 065
     Dates: start: 20120712
  7. PREDNISONE [Concomitant]
     Indication: PREMEDICATION
     Route: 065
  8. BENADRYL [Concomitant]
     Indication: PREMEDICATION
     Route: 065
     Dates: start: 20120712
  9. ALLEGRA [Concomitant]
     Indication: PREMEDICATION
     Route: 065
     Dates: start: 20120712
  10. TYLENOL/CODEINE NO. 3 [Concomitant]
     Dosage: 300-30 mg
     Route: 065
  11. MULTIVITAMINS [Concomitant]
     Route: 065
  12. CALCIUM 500 [Concomitant]
     Route: 065
  13. VITAMIN D [Concomitant]
     Dosage: 400 unit
     Route: 065
  14. GLIPIZIDE [Concomitant]
     Route: 065
  15. LISINOPRIL [Concomitant]
     Route: 065
  16. DIGITEK [Concomitant]
     Route: 065
  17. COMBIVENT [Concomitant]
     Route: 065
  18. ACTOS [Concomitant]
     Route: 065
  19. B VITAMIN COMPLEX [Concomitant]
     Route: 065
  20. ADVAIR DISKUS 500/50 [Concomitant]
     Route: 065
  21. ACIPHEX [Concomitant]
     Route: 065
  22. ALENDRONATE SODIUM [Concomitant]
     Route: 065
  23. LIALDA [Concomitant]
     Route: 065
  24. COLESTIPOL HCL [Concomitant]
     Dosage: 3 tablets of 1 g once evry day
     Route: 065
  25. 6 MERCAPTOPURINE [Concomitant]
     Route: 065
  26. HUMIRA [Concomitant]
     Route: 065

REACTIONS (4)
  - Bronchial hyperreactivity [Recovered/Resolved]
  - Confusional state [Recovered/Resolved]
  - Loss of consciousness [Recovered/Resolved]
  - Infusion related reaction [Recovered/Resolved]
